FAERS Safety Report 20197534 (Version 1)
Quarter: 2021Q4

REPORT INFORMATION
  Report Type: Spontaneous
  Country: DK (occurrence: DK)
  Receive Date: 20211217
  Receipt Date: 20211217
  Transmission Date: 20220303
  Serious: Yes (Hospitalization)
  Sender: FDA-Public Use
  Company Number: None

PATIENT
  Age: 83 Year
  Sex: Female

DRUGS (2)
  1. QUETIAPINE [Interacting]
     Active Substance: QUETIAPINE
     Indication: Bipolar disorder
     Dosage: STRENGTH: 300 MG, UNIT DOSE: 300 MG
     Route: 048
     Dates: start: 20190624
  2. ERYTHROMYCIN STEARATE [Interacting]
     Active Substance: ERYTHROMYCIN STEARATE
     Indication: Soft tissue infection
     Dosage: DOSAGE: FOR 10 DAYS, STRENGTH: 500 MG, UNIT DOSE: 2000 MG
     Route: 048
     Dates: start: 20210909, end: 202109

REACTIONS (3)
  - Drug interaction [Unknown]
  - Loss of consciousness [Recovering/Resolving]
  - Cognitive disorder [Not Recovered/Not Resolved]

NARRATIVE: CASE EVENT DATE: 20210901
